FAERS Safety Report 6814875-X (Version None)
Quarter: 2010Q3

REPORT INFORMATION
  Report Type: 
  Country: None (occurrence: None)
  Receive Date: 20100702
  Receipt Date: 20100629
  Transmission Date: 20110219
  Serious: Yes (Hospitalization)
  Sender: FDA-Public Use
  Company Number: FR-ROCHE-692953

PATIENT
  Sex: Female
  Weight: 61.7 kg

DRUGS (9)
  1. BEVACIZUMAB [Suspect]
     Indication: NON-SMALL CELL LUNG CANCER
     Dosage: FORM: B5005 (100 MG) AND B5022 (400 MG), PERMANENTLY DISCONTINUED
     Route: 042
     Dates: start: 20100105, end: 20100216
  2. CISPLATIN [Suspect]
     Indication: NON-SMALL CELL LUNG CANCER
     Dosage: LAST DOSE PRIOR TO SAE: 16 FEB 2010
     Route: 042
     Dates: start: 20100105
  3. PEMETREXED [Suspect]
     Indication: NON-SMALL CELL LUNG CANCER
     Dosage: DOSAGE FORM: 500 MG, LAST DOSE PRIOR TO SAE: 16 FEB 2010
     Route: 042
     Dates: start: 20100105
  4. SPECIAFOLDINE [Concomitant]
     Dates: start: 20100105, end: 20100329
  5. DUPHALAC [Concomitant]
     Dates: start: 20100105
  6. NEXIUM [Concomitant]
     Dates: start: 20100108
  7. CORTANCYL [Concomitant]
     Dates: start: 20100217, end: 20100308
  8. MOTILIUM [Concomitant]
     Dates: start: 20100217, end: 20100308
  9. DURAGESIC-100 [Concomitant]
     Dates: start: 20100109

REACTIONS (1)
  - REVERSIBLE POSTERIOR LEUKOENCEPHALOPATHY SYNDROME [None]
